FAERS Safety Report 21142260 (Version 2)
Quarter: 2022Q3

REPORT INFORMATION
  Report Type: Spontaneous
  Country: NZ (occurrence: NZ)
  Receive Date: 20220728
  Receipt Date: 20220825
  Transmission Date: 20221027
  Serious: No
  Sender: FDA-Public Use
  Company Number: NZ-PFIZER INC-202200950251

PATIENT
  Sex: Female

DRUGS (1)
  1. ENBREL [Suspect]
     Active Substance: ETANERCEPT
     Dosage: 50 MG

REACTIONS (3)
  - Drug dose omission by device [Unknown]
  - Device colour issue [Unknown]
  - Product confusion [Unknown]
